FAERS Safety Report 17749244 (Version 3)
Quarter: 2022Q3

REPORT INFORMATION
  Report Type: Spontaneous
  Country: US (occurrence: None)
  Receive Date: 20200505
  Receipt Date: 20220916
  Transmission Date: 20221027
  Serious: Yes (Death, Other)
  Sender: FDA-Public Use
  Company Number: 2020SE58769

PATIENT
  Age: 25685 Day
  Sex: Female

DRUGS (51)
  1. NEXIUM [Suspect]
     Active Substance: ESOMEPRAZOLE MAGNESIUM
     Indication: Gastrooesophageal reflux disease
     Route: 048
     Dates: start: 200001, end: 2016
  2. NEXIUM [Suspect]
     Active Substance: ESOMEPRAZOLE MAGNESIUM
     Indication: Gastrooesophageal reflux disease
     Route: 048
  3. NEXIUM 24HR [Suspect]
     Active Substance: ESOMEPRAZOLE MAGNESIUM
     Indication: Gastrooesophageal reflux disease
     Route: 048
     Dates: start: 200001, end: 2016
  4. NEXIUM 24HR [Suspect]
     Active Substance: ESOMEPRAZOLE MAGNESIUM
     Indication: Gastrooesophageal reflux disease
     Route: 048
  5. PRILOSEC [Suspect]
     Active Substance: OMEPRAZOLE MAGNESIUM
     Indication: Gastrooesophageal reflux disease
     Route: 048
     Dates: start: 200001
  6. PRILOSEC [Suspect]
     Active Substance: OMEPRAZOLE MAGNESIUM
     Indication: Gastrooesophageal reflux disease
     Route: 048
  7. PRILOSEC OTC [Suspect]
     Active Substance: OMEPRAZOLE MAGNESIUM
     Indication: Gastrooesophageal reflux disease
     Route: 048
     Dates: start: 200001
  8. PRILOSEC OTC [Suspect]
     Active Substance: OMEPRAZOLE MAGNESIUM
     Indication: Gastrooesophageal reflux disease
     Route: 048
  9. PREVACID [Suspect]
     Active Substance: LANSOPRAZOLE
     Indication: Gastrooesophageal reflux disease
     Route: 065
     Dates: start: 200001
  10. PREVACID [Suspect]
     Active Substance: LANSOPRAZOLE
     Indication: Gastrooesophageal reflux disease
     Route: 065
  11. PREVACID 24 HR [Suspect]
     Active Substance: LANSOPRAZOLE
     Indication: Gastrooesophageal reflux disease
     Route: 065
     Dates: start: 200001
  12. PREVACID 24 HR [Suspect]
     Active Substance: LANSOPRAZOLE
     Indication: Gastrooesophageal reflux disease
     Route: 065
  13. PLAVIX [Concomitant]
     Active Substance: CLOPIDOGREL BISULFATE
  14. MORPHINE [Concomitant]
     Active Substance: MORPHINE
  15. ASPIRIN [Concomitant]
     Active Substance: ASPIRIN
  16. DONEPEZIL [Concomitant]
     Active Substance: DONEPEZIL
  17. KLONOPIN [Concomitant]
     Active Substance: CLONAZEPAM
  18. CYMBALTA [Concomitant]
     Active Substance: DULOXETINE HYDROCHLORIDE
  19. DESOWEN [Concomitant]
     Active Substance: DESONIDE
  20. REMERON [Concomitant]
     Active Substance: MIRTAZAPINE
  21. BUSPAR [Concomitant]
     Active Substance: BUSPIRONE HYDROCHLORIDE
  22. NITROSTAT [Concomitant]
     Active Substance: NITROGLYCERIN
  23. ROXICODONE [Concomitant]
     Active Substance: OXYCODONE HYDROCHLORIDE
  24. NAMENDA [Concomitant]
     Active Substance: MEMANTINE HYDROCHLORIDE
  25. PROVENTIL [Concomitant]
     Active Substance: ALBUTEROL
  26. BENTYL [Concomitant]
     Active Substance: DICYCLOMINE HYDROCHLORIDE
  27. FLONASE [Concomitant]
     Active Substance: FLUTICASONE PROPIONATE
  28. MIRALAX [Concomitant]
     Active Substance: POLYETHYLENE GLYCOL 3350
  29. NASTURTIUM OFFICINALE/SODIUM SULFATE/MYOSOTIS ARVENSIS/GERANIUM ROBERT [Concomitant]
  30. LINZESS [Concomitant]
     Active Substance: LINACLOTIDE
  31. LASIX [Concomitant]
     Active Substance: FUROSEMIDE
  32. VOLTAREN [Concomitant]
     Active Substance: DICLOFENAC SODIUM
  33. NORVASC [Concomitant]
     Active Substance: AMLODIPINE BESYLATE
  34. NEURONTIN [Concomitant]
     Active Substance: GABAPENTIN
  35. GLUCOPHAGE [Concomitant]
     Active Substance: METFORMIN HYDROCHLORIDE
  36. COREG [Concomitant]
     Active Substance: CARVEDILOL
  37. AUGMENTIN [Concomitant]
     Active Substance: AMOXICILLIN\CLAVULANATE POTASSIUM
  38. MEDROL [Concomitant]
     Active Substance: METHYLPREDNISOLONE
  39. DOXYCYCLINE HYCLATE [Concomitant]
     Active Substance: DOXYCYCLINE HYCLATE
  40. AMOXIL [Concomitant]
     Active Substance: AMOXICILLIN
  41. MIACALCIN [Concomitant]
     Active Substance: CALCITONIN SALMON
  42. ONDANSETRON [Concomitant]
     Active Substance: ONDANSETRON
  43. PREDNISONE [Concomitant]
     Active Substance: PREDNISONE
  44. LACTULOSE [Concomitant]
     Active Substance: LACTULOSE
  45. ADVAIR DISKUS [Concomitant]
     Active Substance: FLUTICASONE PROPIONATE\SALMETEROL XINAFOATE
  46. NYSTATIN [Concomitant]
     Active Substance: NYSTATIN
  47. LIBRAX [Concomitant]
     Active Substance: CHLORDIAZEPOXIDE HYDROCHLORIDE\CLIDINIUM BROMIDE
  48. CLIDINIUM [Concomitant]
     Active Substance: CLIDINIUM
  49. ABILIFY [Concomitant]
     Active Substance: ARIPIPRAZOLE
  50. DONNATAL [Concomitant]
     Active Substance: ATROPINE SULFATE\HYOSCYAMINE SULFATE\PHENOBARBITAL\SCOPOLAMINE HYDROBROMIDE
  51. ATROPA BELLADONNA\HOMEOPATHICS [Concomitant]
     Active Substance: ATROPA BELLADONNA\HOMEOPATHICS

REACTIONS (5)
  - Death [Fatal]
  - Chronic kidney disease [Unknown]
  - End stage renal disease [Unknown]
  - Tubulointerstitial nephritis [Unknown]
  - Renal failure [Unknown]

NARRATIVE: CASE EVENT DATE: 20130212
